FAERS Safety Report 5729769-0 (Version None)
Quarter: 2008Q2

REPORT INFORMATION
  Report Type: 
  Country: None (occurrence: None)
  Receive Date: 20080501
  Receipt Date: 20080417
  Transmission Date: 20081010
  Serious: Yes (Death, Hospitalization)
  Sender: FDA-Public Use
  Company Number: 2008EU000757

PATIENT
  Age: 45 Year
  Sex: Female
  Weight: 60 kg

DRUGS (3)
  1. PROGRAF [Suspect]
     Indication: TRANSPLANT
     Dosage: 7 MG, UID/QD, ORAL
     Route: 048
     Dates: start: 20080320, end: 20080415
  2. CELLCEPT [Suspect]
     Indication: TRANSPLANT
     Dosage: 1 G, UID/QD, ORAL
     Route: 048
     Dates: start: 20080320, end: 20080415
  3. PREDNISOLONE [Suspect]
     Indication: TRANSPLANT
     Dosage: 30  MG, UID/QD, ORAL
     Route: 048
     Dates: start: 20080320, end: 20080415

REACTIONS (3)
  - CEREBROVASCULAR ACCIDENT [None]
  - GRAFT LOSS [None]
  - INTESTINAL HAEMORRHAGE [None]
